FAERS Safety Report 9223385 (Version 1)
Quarter: 2013Q2

REPORT INFORMATION
  Report Type: Spontaneous
  Country: FR (occurrence: FR)
  Receive Date: 20130410
  Receipt Date: 20130410
  Transmission Date: 20140414
  Serious: Yes (Other)
  Sender: FDA-Public Use
  Company Number: FR-ABBOTT-13P-056-1047696-00

PATIENT
  Age: 58 Year
  Sex: Female
  Weight: 57 kg

DRUGS (1)
  1. HUMIRA [Suspect]
     Indication: CROHN^S DISEASE
     Dosage: LOADED DOSE AT 160MG
     Route: 058
     Dates: start: 20130115, end: 20130115

REACTIONS (4)
  - Skin lesion [Recovering/Resolving]
  - Skin reaction [Unknown]
  - Vasculitis [Unknown]
  - Rash [Unknown]
